FAERS Safety Report 9541844 (Version 5)
Quarter: 2013Q4

REPORT INFORMATION
  Report Type: Report from Study
  Country: BR (occurrence: BR)
  Receive Date: 20130923
  Receipt Date: 20131111
  Transmission Date: 20140711
  Serious: Yes (Death, Hospitalization, Other)
  Sender: FDA-Public Use
  Company Number: PHHY2013BR030602

PATIENT
  Age: 71 Year
  Sex: Female

DRUGS (1)
  1. DIOVAN [Suspect]
     Indication: HYPERTENSION
     Dosage: 2 DF (320MG), DAILY
     Route: 048

REACTIONS (7)
  - Pulmonary embolism [Fatal]
  - Cardio-respiratory arrest [Fatal]
  - Hypertension [Recovering/Resolving]
  - General physical health deterioration [Unknown]
  - Depression [Not Recovered/Not Resolved]
  - Abasia [Not Recovered/Not Resolved]
  - Aphagia [Recovering/Resolving]
